FAERS Safety Report 24151180 (Version 1)
Quarter: 2024Q3

REPORT INFORMATION
  Report Type: Spontaneous
  Country: ES (occurrence: ES)
  Receive Date: 20240730
  Receipt Date: 20240730
  Transmission Date: 20241017
  Serious: Yes (Hospitalization, Disabling)
  Sender: MYLAN
  Company Number: ES-MYLANLABS-2024M1070331

PATIENT
  Age: 3 Year
  Sex: Male

DRUGS (1)
  1. MELPHALAN [Suspect]
     Active Substance: MELPHALAN
     Indication: Retinoblastoma
     Dosage: UNK,RECEIVED ON 4 DIFFERENT OCCASIONS

REACTIONS (8)
  - Toxicity to various agents [Recovered/Resolved]
  - Retinal haemorrhage [Recovered/Resolved]
  - Retinopathy [Recovered/Resolved]
  - Choroidal detachment [Recovered/Resolved]
  - Iris discolouration [Recovered/Resolved]
  - Lenticular pigmentation [Recovered/Resolved]
  - Atrophy of globe [Recovered/Resolved]
  - Off label use [Unknown]
